FAERS Safety Report 9343378 (Version 2)
Quarter: 2013Q2

REPORT INFORMATION
  Report Type: Spontaneous
  Country: BR (occurrence: BR)
  Receive Date: 20130612
  Receipt Date: 20130624
  Transmission Date: 20140414
  Serious: Yes (Other)
  Sender: FDA-Public Use
  Company Number: BR-RANBAXY-2013R5-69886

PATIENT
  Age: 44 Year
  Sex: Male
  Weight: 90 kg

DRUGS (5)
  1. CEFUROXIME AXETIL [Suspect]
     Indication: POSTOPERATIVE CARE
     Dosage: 500 MG, BID
     Route: 048
     Dates: start: 20130527, end: 20130605
  2. BENICAR [Concomitant]
     Indication: HYPERTENSION
     Route: 065
  3. ALENIA [Concomitant]
     Indication: ASTHMA
     Route: 065
  4. ALENIA [Concomitant]
     Indication: BRONCHITIS
  5. DIPYRONE [Concomitant]
     Indication: PRODUCT USED FOR UNKNOWN INDICATION
     Dosage: 1 DF, SINGLE
     Route: 065
     Dates: start: 20130528

REACTIONS (3)
  - Chromaturia [Recovered/Resolved]
  - Oliguria [Recovered/Resolved]
  - Pyrexia [Recovered/Resolved]
